FAERS Safety Report 19394366 (Version 1)
Quarter: 2021Q2

REPORT INFORMATION
  Report Type: Report from Study
  Country: DE (occurrence: DE)
  Receive Date: 20210609
  Receipt Date: 20210609
  Transmission Date: 20210717
  Serious: Yes (Life-Threatening, Hospitalization, Disabling)
  Sender: FDA-Public Use
  Company Number: DE-GW PHARMA-201909DEGW3249

PATIENT

DRUGS (2)
  1. EPIDIOLEX [Suspect]
     Active Substance: CANNABIDIOL
     Indication: EPILEPSY
     Dosage: 1500 MILLIGRAM, QD
     Route: 048
     Dates: start: 20190709, end: 20190820
  2. BRIVIACT [Concomitant]
     Active Substance: BRIVARACETAM
     Indication: EPILEPSY
     Dosage: 100 MILLIGRAM, BID (1?0?1?0)
     Route: 065

REACTIONS (7)
  - Suicidal ideation [Recovering/Resolving]
  - Acarodermatitis [Unknown]
  - Schizophrenia [Recovered/Resolved]
  - Rash [Not Recovered/Not Resolved]
  - Psychotic disorder [Recovered/Resolved]
  - Decreased appetite [Not Recovered/Not Resolved]
  - Diarrhoea [Recovered/Resolved]

NARRATIVE: CASE EVENT DATE: 201907
